FAERS Safety Report 7208766-2 (Version None)
Quarter: 2011Q1

REPORT INFORMATION
  Report Type: 
  Country: None (occurrence: None)
  Receive Date: 20110104
  Receipt Date: 20101230
  Transmission Date: 20110831
  Serious: Yes (Death)
  Sender: FDA-Public Use
  Company Number: IT-PFIZER INC-2010182308

PATIENT
  Age: 55 Year
  Sex: Male

DRUGS (7)
  1. SUTENT [Suspect]
     Indication: RENAL CANCER
     Dosage: 50 MG, 1X/DAY
     Route: 048
     Dates: start: 20090203, end: 20090313
  2. SOLDESAM [Concomitant]
     Dosage: 2 DF, UNK
  3. CARDURA [Concomitant]
     Dosage: 2 MG, UNK
     Route: 048
  4. COAPROVEL [Concomitant]
     Dosage: 150 MG, UNK
     Route: 048
  5. NEXIUM [Concomitant]
     Dosage: 40 MG, UNK
     Route: 048
  6. NADROPARIN CALCIUM [Concomitant]
     Dosage: 1 DF, UNK
     Route: 058
  7. GARDENALE [Concomitant]
     Dosage: 100 MG, UNK
     Route: 048

REACTIONS (1)
  - CEREBRAL HAEMORRHAGE [None]
